FAERS Safety Report 24283623 (Version 1)
Quarter: 2024Q3

REPORT INFORMATION
  Report Type: Spontaneous
  Country: NL (occurrence: NL)
  Receive Date: 20240904
  Receipt Date: 20240904
  Transmission Date: 20241017
  Serious: Yes (Life-Threatening, Hospitalization)
  Sender: ABBVIE
  Company Number: None

PATIENT
  Age: 33 Year
  Sex: Female

DRUGS (2)
  1. CITALOPRAM [Suspect]
     Active Substance: CITALOPRAM\CITALOPRAM HYDROBROMIDE
     Indication: Depression
     Dosage: 1 X DAILY 1 PIECE
     Route: 065
     Dates: start: 20230501
  2. AMITRIPTYLINE [Suspect]
     Active Substance: AMITRIPTYLINE
     Indication: Neuralgia
     Dosage: AMITRIPTYLINE HCL TABLET 10MG; 1X DAILY 4 PIECES
     Route: 065
     Dates: start: 20230401

REACTIONS (1)
  - Retained placenta or membranes [Unknown]
